FAERS Safety Report 13717387 (Version 1)
Quarter: 2017Q3

REPORT INFORMATION
  Report Type: Spontaneous
  Country: US (occurrence: US)
  Receive Date: 20170705
  Receipt Date: 20170705
  Transmission Date: 20171127
  Serious: Yes (Other)
  Sender: FDA-Public Use
  Company Number: None

PATIENT
  Age: 53 Year
  Sex: Male
  Weight: 144.24 kg

DRUGS (16)
  1. METOPROLOL (TOPROL-XL) [Concomitant]
  2. ALBUTEROL INHALER [Concomitant]
     Active Substance: ALBUTEROL
  3. VICTOZA [Suspect]
     Active Substance: LIRAGLUTIDE
     Indication: DIABETES MELLITUS
     Route: 058
     Dates: start: 20170330, end: 20170401
  4. METFORMIN (GLUCOPHAGE XR) [Concomitant]
  5. ROXICODONE [Concomitant]
     Active Substance: OXYCODONE HYDROCHLORIDE
  6. PROCHLORPERAZINE (COMPAZINE) [Concomitant]
  7. LIPITOR [Concomitant]
     Active Substance: ATORVASTATIN CALCIUM
  8. LORATADINE (CLARITIN) [Concomitant]
  9. LISINOPRIL (PRINIVIL, ZESTRIL) [Concomitant]
  10. DIPHENHYDRAMINE (BENADRYL) [Concomitant]
  11. EPINEPHRINE (EPIPEN) [Concomitant]
  12. PRAMIPEXOLE (MIRAPEX) [Concomitant]
  13. ZANAFLEX [Concomitant]
     Active Substance: TIZANIDINE HYDROCHLORIDE
  14. ZOFRAN [Concomitant]
     Active Substance: ONDANSETRON HYDROCHLORIDE
  15. INSULIN PEN NEEDLE (BD ULTRA-FINE) [Concomitant]
  16. IPRATROPIUM (ATROVENT) [Concomitant]

REACTIONS (1)
  - Hepatitis [None]

NARRATIVE: CASE EVENT DATE: 20170409
